FAERS Safety Report 17197773 (Version 1)
Quarter: 2019Q4

REPORT INFORMATION
  Report Type: Spontaneous
  Country: US (occurrence: US)
  Receive Date: 20191224
  Receipt Date: 20191224
  Transmission Date: 20200122
  Serious: Yes (Death, Hospitalization)
  Sender: FDA-Public Use
  Company Number: US-TEVA-2019-US-1157577

PATIENT
  Age: 67 Year
  Sex: Male

DRUGS (2)
  1. ALCOHOL. [Suspect]
     Active Substance: ALCOHOL
     Route: 065
  2. DILTIAZEM. [Suspect]
     Active Substance: DILTIAZEM
     Route: 048

REACTIONS (10)
  - Completed suicide [Fatal]
  - Thermal burn [Unknown]
  - Brain oedema [Unknown]
  - Hypoxic-ischaemic encephalopathy [Fatal]
  - Tonsillar disorder [Unknown]
  - Pain in extremity [Unknown]
  - Hyponatraemia [Fatal]
  - Polydipsia [Fatal]
  - Dizziness [Unknown]
  - Intentional overdose [Fatal]
